FAERS Safety Report 4296551-3 (Version None)
Quarter: 2004Q1

REPORT INFORMATION
  Report Type: 
  Country: None (occurrence: None)
  Receive Date: 20040126
  Receipt Date: 20030825
  Transmission Date: 20041129
  Serious: No
  Sender: FDA-Public Use
  Company Number: USA030845338

PATIENT
  Age: 7 Year
  Sex: Male
  Weight: 25 kg

DRUGS (4)
  1. STRATTERA [Suspect]
     Indication: ATTENTION DEFICIT/HYPERACTIVITY DISORDER
     Dosage: 35 MG/DAY
     Dates: start: 20030718
  2. RITALIN [Concomitant]
  3. CONCERTA [Concomitant]
  4. ADDERALL 10 [Concomitant]

REACTIONS (7)
  - AGGRESSION [None]
  - DECREASED APPETITE [None]
  - DISTURBANCE IN ATTENTION [None]
  - DRUG INEFFECTIVE [None]
  - FATIGUE [None]
  - NERVOUSNESS [None]
  - SPEECH DISORDER [None]
